FAERS Safety Report 8290998-6 (Version None)
Quarter: 2012Q2

REPORT INFORMATION
  Report Type: 
  Country: None (occurrence: None)
  Receive Date: 20120417
  Receipt Date: 20110615
  Transmission Date: 20120825
  Serious: No
  Sender: FDA-Public Use
  Company Number: US-ASTRAZENECA-2011SE36387

PATIENT
  Age: 77 Year
  Sex: Male

DRUGS (4)
  1. NEXIUM [Suspect]
     Route: 048
  2. COUMADIN [Concomitant]
  3. NEXIUM [Suspect]
     Dosage: 40 MG FOUR TIMES WEEKLY
     Route: 048
  4. NEXIUM [Suspect]
     Indication: GASTRIC ULCER
     Route: 048
     Dates: start: 20100401

REACTIONS (4)
  - DIARRHOEA [None]
  - NAUSEA [None]
  - VITAMIN D DEFICIENCY [None]
  - FLATULENCE [None]
